FAERS Safety Report 9759866 (Version 1)
Quarter: 2013Q4

REPORT INFORMATION
  Report Type: Spontaneous
  Country: US (occurrence: US)
  Receive Date: 20131216
  Receipt Date: 20131216
  Transmission Date: 20140711
  Serious: Yes (Hospitalization)
  Sender: FDA-Public Use
  Company Number: US-BAYER-2013-152628

PATIENT
  Age: 17 Year
  Sex: Female
  Weight: 102 kg

DRUGS (6)
  1. YASMIN [Suspect]
  2. PERCOCET [Concomitant]
     Indication: PELVIC PAIN
     Dosage: UNK
     Route: 048
     Dates: start: 20040101
  3. PHENERGAN [Concomitant]
     Dosage: UNK
     Route: 048
     Dates: start: 20040101
  4. ALDARA [Concomitant]
     Indication: SKIN PAPILLOMA
     Dosage: 5 %, UNK
     Route: 061
     Dates: start: 20040105
  5. MORPHINE [Concomitant]
  6. DEMEROL [Concomitant]

REACTIONS (4)
  - Pulmonary embolism [None]
  - Pelvic venous thrombosis [Recovering/Resolving]
  - Deep vein thrombosis [None]
  - Vena cava thrombosis [None]
